FAERS Safety Report 18506641 (Version 3)
Quarter: 2020Q4

REPORT INFORMATION
  Report Type: Spontaneous
  Country: US (occurrence: US)
  Receive Date: 20201116
  Receipt Date: 20201214
  Transmission Date: 20210114
  Serious: No
  Sender: FDA-Public Use
  Company Number: US-PFIZER INC-2020443491

PATIENT
  Age: 65 Year
  Sex: Female
  Weight: 63 kg

DRUGS (3)
  1. LETROZOLE. [Concomitant]
     Active Substance: LETROZOLE
     Indication: BREAST CANCER METASTATIC
     Dosage: 2.5 MG, DAILY
     Route: 048
  2. IBRANCE [Suspect]
     Active Substance: PALBOCICLIB
     Indication: BREAST CANCER METASTATIC
     Dosage: 125 MG, CYCLIC (1 TABLET BY MOUTH DAILY 3 WEEKS ON AND 1 WEEK OFF)
     Route: 048
     Dates: start: 20201020
  3. IBRANCE [Suspect]
     Active Substance: PALBOCICLIB
     Dosage: 125 MG
     Dates: start: 20201126, end: 2020

REACTIONS (9)
  - Alopecia [Not Recovered/Not Resolved]
  - Neutrophil count decreased [Recovered/Resolved]
  - Stomatitis [Not Recovered/Not Resolved]
  - Gingival pain [Unknown]
  - Diarrhoea [Recovering/Resolving]
  - Epistaxis [Not Recovered/Not Resolved]
  - Blood count abnormal [Unknown]
  - Noninfective gingivitis [Unknown]
  - Gingival oedema [Unknown]

NARRATIVE: CASE EVENT DATE: 2020
